FAERS Safety Report 5276789-9 (Version None)
Quarter: 2007Q1

REPORT INFORMATION
  Report Type: 
  Country: None (occurrence: None)
  Receive Date: 20070321
  Receipt Date: 20061129
  Transmission Date: 20070707
  Serious: Yes (Hospitalization)
  Sender: FDA-Public Use
  Company Number: 231803K06USA

PATIENT
  Age: 64 Year
  Sex: Female

DRUGS (2)
  1. REBIF [Suspect]
     Indication: MULTIPLE SCLEROSIS
     Dosage: 44 MCG,
     Dates: start: 20040615, end: 20060217
  2. REBIF [Suspect]
     Indication: MULTIPLE SCLEROSIS
     Dosage: 44 MCG,
     Dates: start: 20060101

REACTIONS (6)
  - CONDITION AGGRAVATED [None]
  - DECUBITUS ULCER [None]
  - DYSSTASIA [None]
  - MUSCULOSKELETAL STIFFNESS [None]
  - SELF-INJURIOUS IDEATION [None]
  - SKIN GRAFT [None]
